FAERS Safety Report 5747841-6 (Version None)
Quarter: 2008Q2

REPORT INFORMATION
  Report Type: 
  Country: None (occurrence: None)
  Receive Date: 20080523
  Receipt Date: 20080519
  Transmission Date: 20081010
  Serious: Yes (Death)
  Sender: FDA-Public Use
  Company Number: US-ROCHE-565239

PATIENT
  Age: 57 Year
  Sex: Male

DRUGS (16)
  1. PEGASYS [Suspect]
     Dosage: HAD ALSO DONE 12 WEEKS OF DOUBLE DOSE PEGASYS.
     Route: 058
     Dates: start: 20071001, end: 20080501
  2. RIBAVIRIN [Suspect]
     Route: 065
     Dates: start: 20071001, end: 20080501
  3. TENOFOVIR [Concomitant]
  4. EFAVIRENZ [Concomitant]
  5. EPIVIR [Concomitant]
  6. COUMADIN [Concomitant]
  7. NEURONTIN [Concomitant]
  8. CLONAZEPAM (NON-ROCHE) [Concomitant]
  9. PROVIGIL [Concomitant]
  10. WELLBUTRIN XL [Concomitant]
  11. SEROQUEL [Concomitant]
  12. PERCOCET [Concomitant]
  13. PERCOCET [Concomitant]
  14. AVINZA [Concomitant]
  15. EFFEXOR [Concomitant]
  16. HYDROXYZINE [Concomitant]

REACTIONS (3)
  - ARTERIOSCLEROSIS CORONARY ARTERY [None]
  - BLOOD PRESSURE INCREASED [None]
  - NO THERAPEUTIC RESPONSE [None]
